FAERS Safety Report 7208605-X (Version None)
Quarter: 2011Q1

REPORT INFORMATION
  Report Type: 
  Country: None (occurrence: None)
  Receive Date: 20110104
  Receipt Date: 20101217
  Transmission Date: 20110831
  Serious: Yes (Hospitalization)
  Sender: FDA-Public Use
  Company Number: FR-ROCHE-642189

PATIENT
  Sex: Male

DRUGS (4)
  1. NEXIUM [Concomitant]
     Dates: start: 20081027
  2. CORTANCYL [Suspect]
     Indication: RENAL TRANSPLANT
     Dosage: DRUG: PREDNISONE ACETATE
     Route: 065
     Dates: start: 20060712
  3. MYCOPHENOLATE MOFETIL [Suspect]
     Indication: RENAL TRANSPLANT
     Route: 065
     Dates: start: 20060710
  4. BELATACEPT [Suspect]
     Indication: RENAL TRANSPLANT
     Route: 042
     Dates: start: 20060710

REACTIONS (4)
  - URINARY TRACT INFECTION [None]
  - PYREXIA [None]
  - RENAL FAILURE ACUTE [None]
  - GENERAL PHYSICAL HEALTH DETERIORATION [None]
